FAERS Safety Report 4479530-2 (Version None)
Quarter: 2004Q4

REPORT INFORMATION
  Report Type: 
  Country: None (occurrence: None)
  Receive Date: 20041020
  Receipt Date: 20041014
  Transmission Date: 20050328
  Serious: Yes (Hospitalization)
  Sender: FDA-Public Use
  Company Number: US-BRISTOL-MYERS SQUIBB COMPANY-12733598

PATIENT
  Age: 58 Year
  Sex: Female

DRUGS (2)
  1. ERBITUX [Suspect]
     Dosage: INFUSION STOPPED
     Route: 042
     Dates: start: 20041014, end: 20041014
  2. BENADRYL [Concomitant]
     Indication: PREMEDICATION
     Route: 042
     Dates: start: 20041014, end: 20041014

REACTIONS (5)
  - DYSPNOEA [None]
  - ERYTHEMA [None]
  - PRURITUS [None]
  - PULSE PRESSURE DECREASED [None]
  - RESPIRATORY ACIDOSIS [None]
